FAERS Safety Report 7177296-9 (Version None)
Quarter: 2010Q4

REPORT INFORMATION
  Report Type: 
  Country: None (occurrence: None)
  Receive Date: 20101220
  Receipt Date: 20101207
  Transmission Date: 20110411
  Serious: Yes (Other)
  Sender: FDA-Public Use
  Company Number: US-ELI_LILLY_AND_COMPANY-US200910006904

PATIENT
  Sex: Male

DRUGS (4)
  1. FORTEO [Suspect]
     Indication: OSTEOPOROSIS
     Dosage: 20 UG, DAILY (1/D)
     Route: 065
  2. FORTEO [Suspect]
  3. COUMADIN [Concomitant]
  4. ANALGESICS [Concomitant]
     Dosage: UNK, UNKNOWN
     Route: 065

REACTIONS (5)
  - HAEMATURIA [None]
  - PAIN [None]
  - RETINAL HAEMORRHAGE [None]
  - SPINAL COMPRESSION FRACTURE [None]
  - SPINAL FUSION SURGERY [None]
